FAERS Safety Report 13226017 (Version 1)
Quarter: 2017Q1

REPORT INFORMATION
  Report Type: Spontaneous
  Country: US (occurrence: US)
  Receive Date: 20170211
  Receipt Date: 20170211
  Transmission Date: 20170428
  Serious: Yes (Life-Threatening)
  Sender: FDA-Public Use
  Company Number: None

PATIENT
  Age: 73 Year
  Sex: Male
  Weight: 81 kg

DRUGS (1)
  1. NITROGLYCERIN SL [Suspect]
     Active Substance: NITROGLYCERIN
     Route: 048
     Dates: start: 20161015

REACTIONS (1)
  - Drug ineffective [None]
